FAERS Safety Report 14780893 (Version 1)
Quarter: 2018Q2

REPORT INFORMATION
  Report Type: Spontaneous
  Country: US (occurrence: US)
  Receive Date: 20180419
  Receipt Date: 20180419
  Transmission Date: 20180711
  Serious: No
  Sender: FDA-Public Use
  Company Number: US-GLAXOSMITHKLINE-US2018068115

PATIENT
  Sex: Female

DRUGS (1)
  1. CEFTIN [Suspect]
     Active Substance: CEFUROXIME AXETIL
     Dosage: 100 ML, UNK

REACTIONS (1)
  - Product storage error [Unknown]
